FAERS Safety Report 4333269-2 (Version None)
Quarter: 2004Q2

REPORT INFORMATION
  Report Type: 
  Country: None (occurrence: None)
  Receive Date: 20040401
  Receipt Date: 20040330
  Transmission Date: 20050107
  Serious: Yes (Hospitalization, Disabling, Other)
  Sender: FDA-Public Use
  Company Number: AE-304-072

PATIENT
  Sex: Male

DRUGS (1)
  1. LIDODERM [Suspect]
     Indication: PAIN IN EXTREMITY
     Dosage: 1 PATCH

REACTIONS (10)
  - APPLICATION SITE ERYTHEMA [None]
  - APPLICATION SITE REACTION [None]
  - APPLICATION SITE SWELLING [None]
  - ASTHENIA [None]
  - INFECTION [None]
  - NECROSIS [None]
  - PAIN IN EXTREMITY [None]
  - PHARMACEUTICAL PRODUCT COMPLAINT [None]
  - RASH [None]
  - WOUND [None]
